FAERS Safety Report 16627451 (Version 1)
Quarter: 2019Q3

REPORT INFORMATION
  Report Type: Report from Study
  Country: IE (occurrence: IE)
  Receive Date: 20190724
  Receipt Date: 20190724
  Transmission Date: 20191004
  Serious: Yes (Other)
  Sender: FDA-Public Use
  Company Number: IE-JNJFOC-20190718659

PATIENT
  Age: 64 Year
  Sex: Female

DRUGS (5)
  1. NSA [Concomitant]
     Active Substance: UNSPECIFIED INGREDIENT
  2. AMLODIPINE [Concomitant]
     Active Substance: AMLODIPINE BESYLATE
  3. STELARA [Suspect]
     Active Substance: USTEKINUMAB
     Indication: MYALGIA
     Route: 058
     Dates: start: 20190322
  4. PANTOPRAZOLE [Concomitant]
     Active Substance: PANTOPRAZOLE
  5. TRITACE [Concomitant]
     Active Substance: RAMIPRIL

REACTIONS (3)
  - Parathyroidectomy [Unknown]
  - Off label use [Unknown]
  - Product use in unapproved indication [Unknown]

NARRATIVE: CASE EVENT DATE: 20190322
